FAERS Safety Report 4890851-1 (Version None)
Quarter: 2006Q1

REPORT INFORMATION
  Report Type: 
  Country: None (occurrence: None)
  Receive Date: 20060123
  Receipt Date: 20060111
  Transmission Date: 20060701
  Serious: No
  Sender: FDA-Public Use
  Company Number: 06H-163-0304365-00

PATIENT
  Age: 65 Year
  Sex: Female

DRUGS (5)
  1. STERILE VANCOMYCIN HCL, USP, 1 GM, 25 ML FT VIAL (STERILE VANCOMYCIN [Suspect]
     Indication: INFECTION
     Dosage: 1 GM  1 IN 12 HR INTRAVENOUS
     Route: 042
     Dates: start: 20051215, end: 20051229
  2. EVISTA [Concomitant]
  3. LISINOPRIL [Concomitant]
  4. TOPROL-XL [Concomitant]
  5. TETRAPRESS [Concomitant]

REACTIONS (2)
  - METABOLIC DISORDER [None]
  - PYREXIA [None]
